FAERS Safety Report 4873980-8 (Version None)
Quarter: 2006Q1

REPORT INFORMATION
  Report Type: 
  Country: None (occurrence: None)
  Receive Date: 20060104
  Receipt Date: 20051227
  Transmission Date: 20060701
  Serious: Yes (Other)
  Sender: FDA-Public Use
  Company Number: 2005BI020070

PATIENT
  Age: 54 Year
  Sex: Male

DRUGS (11)
  1. AVONEX [Suspect]
     Indication: MULTIPLE SCLEROSIS
     Dosage: 30 UG QW IM
     Route: 030
     Dates: start: 19990901
  2. MECLIZIDE [Concomitant]
  3. LIPITOR [Concomitant]
  4. URECHOLINE [Concomitant]
  5. GLUCOTROL [Concomitant]
  6. FLOMAX [Concomitant]
  7. LISINOPRIL [Concomitant]
  8. FOSAMAX [Concomitant]
  9. ALPHAGAN [Concomitant]
  10. VIAGRA [Concomitant]
  11. CELEXA [Concomitant]

REACTIONS (1)
  - NO ADVERSE EFFECT [None]
